FAERS Safety Report 8348117-3 (Version None)
Quarter: 2012Q2

REPORT INFORMATION
  Report Type: 
  Country: None (occurrence: None)
  Receive Date: 20120509
  Receipt Date: 20120507
  Transmission Date: 20120825
  Serious: Yes (Hospitalization)
  Sender: FDA-Public Use
  Company Number: PHEH2012US008957

PATIENT
  Sex: Female

DRUGS (1)
  1. DIOVAN HCT [Suspect]
     Dosage: 1 DF (320 MG VALSAR AND 25 MG HYDRO), UNK

REACTIONS (5)
  - LOSS OF CONSCIOUSNESS [None]
  - VERTIGO [None]
  - NAUSEA [None]
  - SYNCOPE [None]
  - DIZZINESS [None]
